FAERS Safety Report 19981074 (Version 1)
Quarter: 2021Q4

REPORT INFORMATION
  Report Type: Spontaneous
  Country: CA (occurrence: CA)
  Receive Date: 20211021
  Receipt Date: 20211021
  Transmission Date: 20220303
  Serious: Yes (Death)
  Sender: FDA-Public Use
  Company Number: CA-PFIZER INC-202101380302

PATIENT
  Age: 88 Year
  Sex: Female

DRUGS (15)
  1. REVATIO [Suspect]
     Active Substance: SILDENAFIL CITRATE
     Indication: Pulmonary hypertension
     Dosage: 20 MG
     Dates: start: 20160223
  2. ZAROXOLYN [Concomitant]
     Active Substance: METOLAZONE
  3. EURO-FER [Concomitant]
  4. SYNTHROID [Concomitant]
     Active Substance: LEVOTHYROXINE SODIUM
  5. RABEPRAZOLE [Concomitant]
     Active Substance: RABEPRAZOLE
  6. IRBESARTAN [Concomitant]
     Active Substance: IRBESARTAN
  7. EZETIMIBE [Concomitant]
     Active Substance: EZETIMIBE
  8. BISOPROLOL [Concomitant]
     Active Substance: BISOPROLOL
  9. GABAPENTIN [Concomitant]
     Active Substance: GABAPENTIN
  10. WARFARIN [Concomitant]
     Active Substance: WARFARIN
  11. VITAMIN D NOS [Concomitant]
     Active Substance: VITAMIN D NOS
  12. CYANOCOBALAMIN [Concomitant]
     Active Substance: CYANOCOBALAMIN
  13. FISH OIL [Concomitant]
     Active Substance: FISH OIL
  14. TYLENOL [Concomitant]
     Active Substance: ACETAMINOPHEN
  15. OXYGEN [Concomitant]
     Active Substance: OXYGEN

REACTIONS (1)
  - Sudden death [Fatal]

NARRATIVE: CASE EVENT DATE: 20210921
